FAERS Safety Report 6192904-7 (Version None)
Quarter: 2009Q2

REPORT INFORMATION
  Report Type: 
  Country: None (occurrence: None)
  Receive Date: 20090518
  Receipt Date: 20090512
  Transmission Date: 20091009
  Serious: Yes (Hospitalization, Other)
  Sender: FDA-Public Use
  Company Number: KR-BAYER-200920623GPV

PATIENT
  Age: 54 Year
  Sex: Male

DRUGS (5)
  1. FLUDARABINE PHOSPHATE [Suspect]
     Indication: CHRONIC LYMPHOCYTIC LEUKAEMIA
     Dosage: 6 CYCLES
     Dates: start: 20041101, end: 20050601
  2. FLUDARABINE PHOSPHATE [Suspect]
     Dosage: 2 CYCLES
     Dates: start: 20071101, end: 20080501
  3. CYCLOPHOSPHAMIDE [Suspect]
     Indication: CHRONIC LYMPHOCYTIC LEUKAEMIA
     Dosage: SIX CYCLES
     Dates: start: 20041101, end: 20050601
  4. RITUXIMAB [Suspect]
     Indication: CHRONIC LYMPHOCYTIC LEUKAEMIA
     Dosage: SIX CYCLES
     Dates: start: 20041101, end: 20050601
  5. VIDAZA [Concomitant]
     Dosage: FOUR CYCLES
     Dates: start: 20071101, end: 20080501

REACTIONS (1)
  - MYELODYSPLASTIC SYNDROME [None]
